FAERS Safety Report 6856749-4 (Version None)
Quarter: 2010Q3

REPORT INFORMATION
  Report Type: 
  Country: None (occurrence: None)
  Receive Date: 20100719
  Receipt Date: 20100707
  Transmission Date: 20110219
  Serious: Yes (Other)
  Sender: FDA-Public Use
  Company Number: US-GENZYME-CLOF-1001052

PATIENT
  Age: 20 Year
  Sex: Female
  Weight: 70.5 kg

DRUGS (7)
  1. CLOFARABINE [Suspect]
     Indication: LEUKAEMIA
     Dosage: 52 MG/M2, QDX5
     Route: 042
     Dates: start: 20100609, end: 20100613
  2. CLOFARABINE [Suspect]
     Dosage: UNK
     Route: 042
     Dates: start: 20100628
  3. CYTARABINE [Suspect]
     Indication: LEUKAEMIA
     Dosage: 1000 MG/M2, QDX5
     Route: 042
     Dates: start: 20100609, end: 20100613
  4. CYTARABINE [Suspect]
     Dosage: 70 MG, ONCE
     Route: 037
     Dates: start: 20100608, end: 20100608
  5. CYTARABINE [Suspect]
     Dosage: UNK
     Route: 042
     Dates: start: 20100628
  6. LEVAQUIN [Concomitant]
     Indication: PRODUCT USED FOR UNKNOWN INDICATION
  7. PENTAMIDINE ISETHIONATE [Concomitant]
     Indication: PRODUCT USED FOR UNKNOWN INDICATION

REACTIONS (1)
  - LIPASE INCREASED [None]
